FAERS Safety Report 21324999 (Version 7)
Quarter: 2023Q1

REPORT INFORMATION
  Report Type: Report from Study
  Country: US (occurrence: US)
  Receive Date: 20220912
  Receipt Date: 20230324
  Transmission Date: 20230418
  Serious: No
  Sender: FDA-Public Use
  Company Number: US-NOVARTISTESTPH-NVSC2022US205229

PATIENT
  Sex: Female

DRUGS (2)
  1. COSENTYX [Suspect]
     Active Substance: SECUKINUMAB
     Indication: Psoriatic arthropathy
     Dosage: 300 MG, QW
     Route: 058
  2. COSENTYX [Suspect]
     Active Substance: SECUKINUMAB
     Dosage: 300 MG, QMO (SOLUTION)
     Route: 058

REACTIONS (9)
  - Throat irritation [Unknown]
  - Abscess limb [Unknown]
  - Fibromyalgia [Unknown]
  - Myalgia [Unknown]
  - Irritable bowel syndrome [Unknown]
  - Fatigue [Unknown]
  - Feeling abnormal [Unknown]
  - Accidental exposure to product [Unknown]
  - Drug ineffective [Unknown]
